FAERS Safety Report 7635492-8 (Version None)
Quarter: 2011Q3

REPORT INFORMATION
  Report Type: 
  Country: None (occurrence: None)
  Receive Date: 20110726
  Receipt Date: 20110726
  Transmission Date: 20111222
  Serious: Yes (Other)
  Sender: FDA-Public Use
  Company Number: None

PATIENT
  Age: 6 Month
  Sex: Female
  Weight: 106.59 kg

DRUGS (1)
  1. HYLAND TEETHING TABLETS (OTC) [Suspect]
     Dosage: 1 TABLET
     Route: 048
     Dates: start: 20091101, end: 20100501

REACTIONS (1)
  - CARDIAC MURMUR [None]
